FAERS Safety Report 14566843 (Version 4)
Quarter: 2019Q1

REPORT INFORMATION
  Report Type: Report from Study
  Country: CA (occurrence: CA)
  Receive Date: 20180223
  Receipt Date: 20190314
  Transmission Date: 20190417
  Serious: Yes (Other)
  Sender: FDA-Public Use
  Company Number: CA-UCBSA-2017049896

PATIENT
  Age: 58 Year
  Sex: Male
  Weight: 79 kg

DRUGS (2)
  1. CERTOLIZUMAB PEGOL ASP [Suspect]
     Active Substance: CERTOLIZUMAB PEGOL
     Dosage: 400 MG, EV 4 WEEKS
     Route: 058
     Dates: start: 20160915
  2. CERTOLIZUMAB PEGOL ASP [Suspect]
     Active Substance: CERTOLIZUMAB PEGOL
     Indication: ANKYLOSING SPONDYLITIS
     Dosage: 400 MG, EV 2 WEEKS(QOW) X 3 TIMES
     Route: 058
     Dates: start: 20160720, end: 20160817

REACTIONS (4)
  - Dyshidrotic eczema [Not Recovered/Not Resolved]
  - Therapeutic response unexpected [Unknown]
  - Localised infection [Recovered/Resolved]
  - Eczema infected [Not Recovered/Not Resolved]

NARRATIVE: CASE EVENT DATE: 20180120
